FAERS Safety Report 5407528-6 (Version None)
Quarter: 2007Q3

REPORT INFORMATION
  Report Type: 
  Country: None (occurrence: None)
  Receive Date: 20070807
  Receipt Date: 20070726
  Transmission Date: 20080115
  Serious: Yes (Hospitalization, Other)
  Sender: FDA-Public Use
  Company Number: FR-GILEAD-2007-0012831

PATIENT
  Sex: Female

DRUGS (17)
  1. EMTRIVA [Suspect]
     Route: 048
     Dates: start: 20070401
  2. VIREAD [Concomitant]
     Indication: HIV INFECTION
     Route: 048
     Dates: start: 20070401
  3. MK0518 [Concomitant]
     Dates: start: 20070401
  4. FUZEON [Concomitant]
     Dates: start: 20070401
  5. PREZISTA [Concomitant]
     Dates: start: 20070401
  6. NORVIR [Concomitant]
     Dates: start: 20070401
  7. BACTRIM DS [Concomitant]
  8. SPECIAFOLDINE [Concomitant]
  9. ZITHROMAX [Concomitant]
  10. MYAMBUTHOL [Concomitant]
  11. DEPAKENE [Concomitant]
  12. NEULEPTIL [Concomitant]
  13. RISPERDAL [Concomitant]
  14. VFEND [Concomitant]
  15. ZELITREX [Concomitant]
  16. HYDROSOL POLYVITAMINE [Concomitant]
  17. TRILEPTAL [Concomitant]

REACTIONS (5)
  - CONJUNCTIVITIS [None]
  - CYTOLYTIC HEPATITIS [None]
  - LIVER FUNCTION TEST ABNORMAL [None]
  - MELANODERMIA [None]
  - PHOTOSENSITIVITY REACTION [None]
